FAERS Safety Report 15523475 (Version 1)
Quarter: 2018Q4

REPORT INFORMATION
  Report Type: Spontaneous
  Country: FR (occurrence: FR)
  Receive Date: 20181018
  Receipt Date: 20181018
  Transmission Date: 20190205
  Serious: Yes (Other)
  Sender: FDA-Public Use
  Company Number: FR-SUN PHARMACEUTICAL INDUSTRIES LTD-2018RR-188281

PATIENT
  Age: 12 Year
  Sex: Male

DRUGS (2)
  1. ABILIFY [Suspect]
     Active Substance: ARIPIPRAZOLE
     Indication: SCHIZOPHRENIA
     Dosage: INCREASED TO 10MG  08NOV2012-19NOV2012: 10MG
     Route: 048
     Dates: start: 20121118, end: 20121119
  2. RISPERIDONE. [Suspect]
     Active Substance: RISPERIDONE
     Indication: PRODUCT USED FOR UNKNOWN INDICATION
     Dosage: REDUCED TO 1.5MG  INTERRUPTED AND RESTARTED
     Route: 048
     Dates: start: 20120918

REACTIONS (5)
  - Confusional state [Recovered/Resolved]
  - Dysarthria [Recovered/Resolved]
  - Dyskinesia [Recovered/Resolved]
  - Dystonia [Unknown]
  - Off label use [Unknown]

NARRATIVE: CASE EVENT DATE: 20121118
